FAERS Safety Report 9555053 (Version 1)
Quarter: 2013Q3

REPORT INFORMATION
  Report Type: Spontaneous
  Country: US (occurrence: None)
  Receive Date: 20130815
  Receipt Date: 20130815
  Transmission Date: 20140515
  Serious: Yes (Other)
  Sender: FDA-Public Use
  Company Number: ADR-2012-02308

PATIENT
  Sex: Male

DRUGS (2)
  1. LIORESAL INTRATHECAL [Suspect]
     Indication: MUSCLE SPASTICITY
  2. CLONIDINE, INTRATHECAL [Concomitant]

REACTIONS (3)
  - Drug withdrawal syndrome [None]
  - Pruritus [None]
  - Muscle spasms [None]
